FAERS Safety Report 9690584 (Version 1)
Quarter: 2013Q4

REPORT INFORMATION
  Report Type: Spontaneous
  Country: US (occurrence: US)
  Receive Date: 20131115
  Receipt Date: 20131115
  Transmission Date: 20140711
  Serious: Yes (Other)
  Sender: FDA-Public Use
  Company Number: CHPA2013US017021

PATIENT
  Sex: Female

DRUGS (4)
  1. EXCEDRIN ES BACK + BODY [Suspect]
     Indication: FIBROMYALGIA
     Dosage: UNK, UNK
     Route: 048
  2. EXCEDRIN ES BACK + BODY [Suspect]
     Indication: OFF LABEL USE
  3. EXCEDRIN MIGRAINE [Suspect]
     Dosage: UNK, UNK
  4. ACETYLSALICYLIC ACID [Suspect]

REACTIONS (3)
  - Fibromyalgia [Unknown]
  - Disease recurrence [Unknown]
  - Therapeutic response unexpected [Unknown]
